FAERS Safety Report 13693227 (Version 2)
Quarter: 2017Q2

REPORT INFORMATION
  Report Type: Report from Study
  Country: US (occurrence: US)
  Receive Date: 20170627
  Receipt Date: 20170630
  Transmission Date: 20170830
  Serious: No
  Sender: FDA-Public Use
  Company Number: PHEH2017US019582

PATIENT
  Age: 49 Year
  Sex: Female
  Weight: 87.53 kg

DRUGS (1)
  1. GILENYA [Suspect]
     Active Substance: FINGOLIMOD HYDROCHLORIDE
     Indication: MULTIPLE SCLEROSIS
     Dosage: 0.5 MG, QD
     Route: 048
     Dates: start: 20170622

REACTIONS (4)
  - Depression [Unknown]
  - Headache [Recovered/Resolved]
  - Heart rate decreased [Recovered/Resolved]
  - Decreased interest [Unknown]

NARRATIVE: CASE EVENT DATE: 20170622
